FAERS Safety Report 7426291-0 (Version None)
Quarter: 2011Q2

REPORT INFORMATION
  Report Type: 
  Country: None (occurrence: None)
  Receive Date: 20110420
  Receipt Date: 20110408
  Transmission Date: 20111010
  Serious: Yes (Hospitalization)
  Sender: FDA-Public Use
  Company Number: A0921945A

PATIENT
  Age: 60 Year
  Sex: Female

DRUGS (1)
  1. FLOLAN [Suspect]
     Route: 055

REACTIONS (4)
  - INFECTION [None]
  - RESPIRATORY DISORDER [None]
  - CONDITION AGGRAVATED [None]
  - OFF LABEL USE [None]
